FAERS Safety Report 16593882 (Version 1)
Quarter: 2019Q3

REPORT INFORMATION
  Report Type: Spontaneous
  Country: US (occurrence: US)
  Receive Date: 20190718
  Receipt Date: 20190718
  Transmission Date: 20191004
  Serious: No
  Sender: FDA-Public Use
  Company Number: US-SWEDISH ORPHAN BIOVITRUM-2018US1474

PATIENT
  Age: 71 Year
  Sex: Female

DRUGS (13)
  1. KINERET [Suspect]
     Active Substance: ANAKINRA
     Indication: RHEUMATOID ARTHRITIS
     Route: 058
     Dates: start: 20181107
  2. VOLTAREN [Concomitant]
     Active Substance: DICLOFENAC SODIUM
  3. CLARITIN [Concomitant]
     Active Substance: LORATADINE
  4. METHOTREXATE. [Concomitant]
     Active Substance: METHOTREXATE
     Dosage: 5 MG IM Q WEEK
  5. ALLERGY SHOT [Concomitant]
     Active Substance: UNSPECIFIED INGREDIENT
  6. SINGULAIR [Concomitant]
     Active Substance: MONTELUKAST SODIUM
  7. SYNTHROID [Concomitant]
     Active Substance: LEVOTHYROXINE SODIUM
  8. PREDNISONE. [Concomitant]
     Active Substance: PREDNISONE
     Dosage: PRN
  9. TRAMADOL. [Concomitant]
     Active Substance: TRAMADOL
  10. DICLOFENAC [Concomitant]
     Active Substance: DICLOFENAC
  11. RESTASIS [Concomitant]
     Active Substance: CYCLOSPORINE
  12. VOLTAREN [Concomitant]
     Active Substance: DICLOFENAC SODIUM
  13. HYDROCHLOROQUININE [Concomitant]

REACTIONS (2)
  - Rash [Unknown]
  - Urticaria [Unknown]

NARRATIVE: CASE EVENT DATE: 201811
